FAERS Safety Report 10469670 (Version 1)
Quarter: 2014Q3

REPORT INFORMATION
  Report Type: Spontaneous
  Country: US (occurrence: US)
  Receive Date: 20140923
  Receipt Date: 20140923
  Transmission Date: 20150326
  Serious: No
  Sender: FDA-Public Use
  Company Number: US-PFIZER INC-2014257895

PATIENT
  Age: 31 Year
  Sex: Female
  Weight: 69.84 kg

DRUGS (2)
  1. LYRICA [Suspect]
     Active Substance: PREGABALIN
     Indication: PAIN
     Dosage: 100 MG, 3X/DAY
     Route: 048
     Dates: start: 20140721
  2. LYRICA [Suspect]
     Active Substance: PREGABALIN
     Indication: ARTHRALGIA
     Dosage: 50 MG, 3X/DAY
     Route: 048

REACTIONS (5)
  - Off label use [Unknown]
  - Back pain [Unknown]
  - Paraesthesia [Unknown]
  - Malaise [Unknown]
  - Fatigue [Unknown]
